FAERS Safety Report 5128990-2 (Version None)
Quarter: 2006Q4

REPORT INFORMATION
  Report Type: 
  Country: None (occurrence: None)
  Receive Date: 20061011
  Receipt Date: 20061004
  Transmission Date: 20070319
  Serious: Yes (Other)
  Sender: FDA-Public Use
  Company Number: 14888

PATIENT
  Sex: Female

DRUGS (2)
  1. CARBOPLATIN [Suspect]
     Indication: OVARIAN CANCER
  2. TAXOL [Suspect]
     Indication: OVARIAN CANCER

REACTIONS (3)
  - DRUG INEFFECTIVE [None]
  - NEOPLASM RECURRENCE [None]
  - OVARIAN CANCER [None]
